FAERS Safety Report 9626960 (Version 2)
Quarter: 2013Q4

REPORT INFORMATION
  Report Type: Spontaneous
  Country: US (occurrence: None)
  Receive Date: 20131011
  Receipt Date: 20131101
  Transmission Date: 20140711
  Serious: Yes (Other)
  Sender: FDA-Public Use
  Company Number: 1897377

PATIENT
  Age: 64 Year
  Sex: Male
  Weight: 85.28 kg

DRUGS (8)
  1. PENTOSTATINE [Suspect]
     Indication: CHRONIC LYMPHOCYTIC LEUKAEMIA
     Dates: start: 20100301
  2. PENTOSTATINE [Suspect]
     Dates: start: 20100301
  3. ALEMTUZUMAB [Suspect]
     Indication: CHRONIC LYMPHOCYTIC LEUKAEMIA
     Route: 058
     Dates: start: 20101013
  4. ALEMTUZUMAB [Suspect]
     Route: 058
     Dates: start: 20101013
  5. CYCLOPHOSPHAMIDE [Suspect]
     Indication: CHRONIC LYMPHOCYTIC LEUKAEMIA
     Dates: start: 20100301
  6. CYCLOPHOSPHAMIDE [Suspect]
     Dates: start: 20100301
  7. RITUXIMAB [Suspect]
     Indication: CHRONIC LYMPHOCYTIC LEUKAEMIA
     Dates: start: 20100301
  8. RITUXIMAB [Suspect]
     Dates: start: 20100301

REACTIONS (1)
  - Lymphopenia [None]
